FAERS Safety Report 7618334-6 (Version None)
Quarter: 2011Q3

REPORT INFORMATION
  Report Type: 
  Country: None (occurrence: None)
  Receive Date: 20110718
  Receipt Date: 20110711
  Transmission Date: 20111222
  Serious: Yes (Hospitalization)
  Sender: FDA-Public Use
  Company Number: VE-ROCHE-789390

PATIENT
  Sex: Male
  Weight: 35 kg

DRUGS (4)
  1. RECORMON [Concomitant]
     Dosage: DOSE: 3000 UI, FREQUENCY: CYCLIC
     Route: 042
     Dates: start: 20110630
  2. HERCEPTIN [Suspect]
     Indication: GASTRIC CANCER
     Dosage: FREQUENCY: CYCLIC
     Route: 042
     Dates: start: 20110630
  3. EPIRUBICIN [Concomitant]
     Dosage: FREQUENCY: CYCLIC
     Route: 042
     Dates: start: 20110630
  4. XELODA [Suspect]
     Indication: GASTRIC CANCER
     Route: 048
     Dates: start: 20110630, end: 20110712

REACTIONS (4)
  - DEHYDRATION [None]
  - STOMATITIS [None]
  - ASTHENIA [None]
  - DIARRHOEA [None]
